FAERS Safety Report 4871179-2 (Version None)
Quarter: 2005Q4

REPORT INFORMATION
  Report Type: 
  Country: None (occurrence: None)
  Receive Date: 20051229
  Receipt Date: 20051219
  Transmission Date: 20060501
  Serious: Yes (Hospitalization)
  Sender: FDA-Public Use
  Company Number: DE_051017280

PATIENT
  Age: 47 Year
  Sex: Male
  Weight: 50 kg

DRUGS (4)
  1. ZYPREXA [Suspect]
     Indication: DEPRESSION
     Dosage: 5 MG, ORAL
     Route: 048
     Dates: start: 20050530, end: 20050609
  2. CYMBALTA [Concomitant]
  3. ERGENYL CHRONO (VALPROATE SODIUM, VALPROIC ACID) [Concomitant]
  4. ATOSIL (ISOPROMETHAZINE HYDROCHLORIDE) [Concomitant]

REACTIONS (5)
  - DERMATITIS ALLERGIC [None]
  - ERYTHEMA [None]
  - HYPERTHERMIA [None]
  - SKIN WARM [None]
  - SWELLING FACE [None]
